FAERS Safety Report 8169680-1 (Version None)
Quarter: 2012Q1

REPORT INFORMATION
  Report Type: 
  Country: None (occurrence: None)
  Receive Date: 20120228
  Receipt Date: 20120227
  Transmission Date: 20120608
  Serious: No
  Sender: FDA-Public Use
  Company Number: US-PFIZER INC-2012051174

PATIENT
  Sex: Male

DRUGS (2)
  1. CHANTIX [Suspect]
     Indication: SMOKING CESSATION THERAPY
     Dosage: 0.5 MG, DAILY
     Dates: start: 20111201
  2. CHANTIX [Suspect]
     Dosage: UNK
     Dates: end: 20120101

REACTIONS (5)
  - IRRITABILITY [None]
  - WITHDRAWAL SYNDROME [None]
  - AGGRESSION [None]
  - NERVOUSNESS [None]
  - ABNORMAL DREAMS [None]
